FAERS Safety Report 6473020-3 (Version None)
Quarter: 2009Q4

REPORT INFORMATION
  Report Type: 
  Country: None (occurrence: None)
  Receive Date: 20091204
  Receipt Date: 20091125
  Transmission Date: 20100525
  Serious: Yes (Death, Other)
  Sender: FDA-Public Use
  Company Number: US-BIOGENIDEC-2009BI019024

PATIENT
  Age: 50 Year
  Sex: Female

DRUGS (1)
  1. AVONEX [Suspect]
     Indication: MULTIPLE SCLEROSIS
     Route: 030
     Dates: start: 20040721, end: 20080927

REACTIONS (2)
  - ACUTE MYELOID LEUKAEMIA [None]
  - BLAST CELL CRISIS [None]
